FAERS Safety Report 8793334 (Version 2)
Quarter: 2013Q2

REPORT INFORMATION
  Report Type: Report from Study
  Country: BR (occurrence: BR)
  Receive Date: 20120918
  Receipt Date: 20130510
  Transmission Date: 20140414
  Serious: Yes (Other)
  Sender: FDA-Public Use
  Company Number: PHHY2012BR080531

PATIENT
  Age: 57 Year
  Sex: Female
  Weight: 60 kg

DRUGS (8)
  1. FORASEQ [Suspect]
     Indication: ASTHMA
     Dosage: 1 CAPSULE OF EACH TREATMENT TWICE DAILY
  2. OMEPRAZOLE [Concomitant]
     Indication: REFLUX GASTRITIS
     Dosage: 1 DF, QD
     Route: 048
  3. OMEPRAZOLE [Concomitant]
     Dosage: 1 TAB (6MG) AT MORNING + 1 TAB (3MG) AT NIGHT
     Route: 048
     Dates: start: 2010
  4. PREDNISONE [Concomitant]
     Indication: RHEUMATOID ARTHRITIS
     Dosage: MANIPULATED MEDICATION (PREDNISONE 2,5MG/CHLOROQUINE 25MG/RANITIDINE)
     Route: 048
  5. RANITIDINE [Concomitant]
     Dosage: UNK UKN, Q12H
     Route: 048
  6. CHLOROQUINE [Concomitant]
     Indication: RHEUMATOID ARTHRITIS
     Dosage: MANIPULATED MEDICATION (PREDNISONE 2,5MG/CHLOROQUINE 25MG/RANITIDINE)
     Route: 048
  7. GLUCOSAMINE W/CHONDROITIN [Concomitant]
     Indication: ARTHROPATHY
     Dosage: MANIPULATED MEDICATION
  8. COLLAGEN [Concomitant]
     Indication: SKIN DISORDER
     Dosage: 1 DF, Q12H
     Route: 048
     Dates: start: 2010

REACTIONS (16)
  - Pupillary disorder [Not Recovered/Not Resolved]
  - Visual impairment [Not Recovered/Not Resolved]
  - Tendon rupture [Not Recovered/Not Resolved]
  - Pain in extremity [Recovered/Resolved]
  - Fall [Recovered/Resolved]
  - Head injury [Unknown]
  - Weight decreased [Recovered/Resolved]
  - Depression [Recovering/Resolving]
  - Gastritis [Unknown]
  - Migraine [Recovering/Resolving]
  - Neck pain [Recovered/Resolved]
  - Somnolence [Unknown]
  - Memory impairment [Not Recovered/Not Resolved]
  - Headache [Recovering/Resolving]
  - Insomnia [Unknown]
  - Arthropathy [Not Recovered/Not Resolved]
